FAERS Safety Report 18825132 (Version 2)
Quarter: 2021Q1

REPORT INFORMATION
  Report Type: Spontaneous
  Country: US (occurrence: US)
  Receive Date: 20210202
  Receipt Date: 20210224
  Transmission Date: 20210419
  Serious: No
  Sender: FDA-Public Use
  Company Number: US-MERZ PHARMACEUTICALS GMBH-21-00272

PATIENT
  Age: 39 Year
  Sex: Female

DRUGS (18)
  1. BENADRYL [Concomitant]
     Active Substance: DIPHENHYDRAMINE HYDROCHLORIDE
     Dosage: 100 MG
     Route: 048
  2. TUMS [Concomitant]
     Active Substance: CALCIUM CARBONATE
  3. XEOMIN [Suspect]
     Active Substance: INCOBOTULINUMTOXINA
     Indication: SKIN COSMETIC PROCEDURE
     Route: 030
     Dates: start: 20210126, end: 20210126
  4. ALLEGRA [Concomitant]
     Active Substance: FEXOFENADINE HYDROCHLORIDE
  5. KLONOPIN [Concomitant]
     Active Substance: CLONAZEPAM
  6. XEOMIN [Suspect]
     Active Substance: INCOBOTULINUMTOXINA
     Indication: SKIN WRINKLING
  7. BENADRYL [Concomitant]
     Active Substance: DIPHENHYDRAMINE HYDROCHLORIDE
  8. PEPCID [Concomitant]
     Active Substance: FAMOTIDINE
  9. EPIPEN [Concomitant]
     Active Substance: EPINEPHRINE
  10. BOTULINUM TOXIN TYPE A [Concomitant]
     Active Substance: BOTULINUM TOXIN TYPE A
  11. TYLENOL [Concomitant]
     Active Substance: ACETAMINOPHEN
     Dosage: 6 G
     Route: 048
  12. PEPCID [Concomitant]
     Active Substance: FAMOTIDINE
  13. XANAX [Concomitant]
     Active Substance: ALPRAZOLAM
  14. ALLEGRA [Concomitant]
     Active Substance: FEXOFENADINE HYDROCHLORIDE
  15. XEOMIN [Suspect]
     Active Substance: INCOBOTULINUMTOXINA
     Indication: SKIN WRINKLING
  16. XEOMIN [Suspect]
     Active Substance: INCOBOTULINUMTOXINA
     Indication: SKIN COSMETIC PROCEDURE
  17. AMLODIPINE [Concomitant]
     Active Substance: AMLODIPINE BESYLATE
  18. TYLENOL [Concomitant]
     Active Substance: ACETAMINOPHEN

REACTIONS (7)
  - Headache [Recovering/Resolving]
  - Tinnitus [Recovered/Resolved]
  - Dyspnoea [Recovered/Resolved]
  - Rash [Recovered/Resolved]
  - Product preparation issue [Unknown]
  - Off label use [Unknown]
  - Anxiety [Recovering/Resolving]

NARRATIVE: CASE EVENT DATE: 20210126
